FAERS Safety Report 13023250 (Version 2)
Quarter: 2016Q4

REPORT INFORMATION
  Report Type: Spontaneous
  Country: JP (occurrence: JP)
  Receive Date: 20161213
  Receipt Date: 20161228
  Transmission Date: 20170207
  Serious: Yes (Death, Hospitalization)
  Sender: FDA-Public Use
  Company Number: JP-WARNER CHILCOTT, LLC-1060734

PATIENT
  Age: 90 Year
  Sex: Female

DRUGS (3)
  1. TEPRENONE [Concomitant]
     Active Substance: TEPRENONE
  2. CELECOXIB. [Concomitant]
     Active Substance: CELECOXIB
  3. BENET [Suspect]
     Active Substance: RISEDRONATE SODIUM
     Indication: OSTEOPOROSIS
     Route: 048
     Dates: start: 20130903

REACTIONS (3)
  - Haemorrhage [Unknown]
  - Renal impairment [Unknown]
  - Cervix carcinoma [Fatal]
